FAERS Safety Report 15760392 (Version 1)
Quarter: 2018Q4

REPORT INFORMATION
  Report Type: Spontaneous
  Country: JP (occurrence: JP)
  Receive Date: 20181226
  Receipt Date: 20181226
  Transmission Date: 20190205
  Serious: Yes (Hospitalization)
  Sender: FDA-Public Use
  Company Number: JP-SHIONOGI, INC.-2018002186

PATIENT
  Age: 51 Year
  Sex: Female

DRUGS (4)
  1. SODIUM PICOSULFATE [Concomitant]
     Active Substance: SODIUM PICOSULFATE
     Indication: GASTROINTESTINAL MOTILITY DISORDER
     Dosage: 14 GTT, QD
     Route: 048
  2. SYMPROIC [Suspect]
     Active Substance: NALDEMEDINE
     Indication: GASTROINTESTINAL MOTILITY DISORDER
     Dosage: 0.2 MG, QD
     Route: 048
  3. MAGNESIUM OXIDE. [Concomitant]
     Active Substance: MAGNESIUM OXIDE
     Indication: GASTROINTESTINAL MOTILITY DISORDER
     Dosage: 1500 MG, QD
     Route: 048
  4. OXYCONTIN [Concomitant]
     Active Substance: OXYCODONE HYDROCHLORIDE
     Indication: CANCER PAIN
     Dosage: 10 MG, QD
     Route: 048

REACTIONS (2)
  - Intestinal obstruction [Not Recovered/Not Resolved]
  - Vomiting [Unknown]
